FAERS Safety Report 5619391-9 (Version None)
Quarter: 2008Q1

REPORT INFORMATION
  Report Type: 
  Country: None (occurrence: None)
  Receive Date: 20080114
  Receipt Date: 20061122
  Transmission Date: 20080703
  Serious: Yes (Death)
  Sender: FDA-Public Use
  Company Number: A03200607018

PATIENT
  Age: 79 Year
  Sex: Female

DRUGS (5)
  1. PLAVIX [Suspect]
     Indication: STENT PLACEMENT
     Dosage: 75 MG QD - ORAL
     Route: 048
     Dates: start: 20041201
  2. COUMADIN [Suspect]
     Dosage: 2.5 MG QD - ORAL
     Route: 048
  3. ASPIRIN [Suspect]
     Indication: STENT PLACEMENT
     Dosage: 81 MG QD - ORAL
     Route: 048
     Dates: start: 20041201
  4. ALENDRONATE SODIUM [Concomitant]
  5. LEVOTHYROXINE SODIUM [Concomitant]

REACTIONS (1)
  - HAEMORRHAGE INTRACRANIAL [None]
